FAERS Safety Report 12233104 (Version 1)
Quarter: 2016Q2

REPORT INFORMATION
  Report Type: Spontaneous
  Country: US (occurrence: US)
  Receive Date: 20160403
  Receipt Date: 20160403
  Transmission Date: 20160815
  Serious: No
  Sender: FDA-Public Use
  Company Number: US-BIOGEN-2016BI00203417

PATIENT
  Sex: Male

DRUGS (1)
  1. PLEGRIDY [Suspect]
     Active Substance: PEGINTERFERON BETA-1A
     Indication: MULTIPLE SCLEROSIS
     Route: 065
     Dates: start: 20160113

REACTIONS (5)
  - Fracture pain [Recovered/Resolved]
  - Coccydynia [Unknown]
  - Pruritus allergic [Recovered/Resolved]
  - Hypersensitivity [Recovered/Resolved]
  - Arthralgia [Unknown]
